FAERS Safety Report 4724371-1 (Version None)
Quarter: 2005Q3

REPORT INFORMATION
  Report Type: 
  Country: None (occurrence: None)
  Receive Date: 20050720
  Receipt Date: 20050720
  Transmission Date: 20060218
  Serious: Yes (Death, Life-Threatening, Hospitalization)
  Sender: FDA-Public Use
  Company Number: None

PATIENT
  Age: 47 Year
  Sex: Male
  Weight: 63 kg

DRUGS (8)
  1. AVASTIN [Suspect]
     Indication: METASTATIC RENAL CELL CARCINOMA
     Dosage: 633 MG EVERY 2 WEEKS IV
     Route: 042
     Dates: start: 20041213
  2. AVASTIN [Suspect]
     Indication: METASTATIC RENAL CELL CARCINOMA
     Dosage: 633 MG EVERY 2 WEEKS IV
     Route: 042
     Dates: start: 20041230
  3. AVASTIN [Suspect]
     Indication: METASTATIC RENAL CELL CARCINOMA
     Dosage: 633 MG EVERY 2 WEEKS IV
     Route: 042
     Dates: start: 20050113
  4. AVASTIN [Suspect]
     Indication: METASTATIC RENAL CELL CARCINOMA
     Dosage: 633 MG EVERY 2 WEEKS IV
     Route: 042
     Dates: start: 20050128
  5. . [Concomitant]
  6. AVASTIN [Suspect]
  7. AVASTIN [Suspect]
  8. AVASTIN [Suspect]

REACTIONS (6)
  - BRONCHOSCOPY ABNORMAL [None]
  - EPISTAXIS [None]
  - HAEMOPTYSIS [None]
  - HAEMORRHAGE [None]
  - PULSE ABSENT [None]
  - RESUSCITATION [None]
